FAERS Safety Report 7751304-6 (Version None)
Quarter: 2011Q3

REPORT INFORMATION
  Report Type: 
  Country: None (occurrence: None)
  Receive Date: 20110914
  Receipt Date: 20110901
  Transmission Date: 20111222
  Serious: Yes (Other)
  Sender: FDA-Public Use
  Company Number: ES-TYCO HEALTHCARE/MALLINCKRODT-T201101759

PATIENT
  Age: 70 Year
  Sex: Female

DRUGS (7)
  1. VARIDASA [Concomitant]
     Indication: PRODUCT USED FOR UNKNOWN INDICATION
     Dosage: UNK
  2. ACETAMINOPHEN [Concomitant]
     Indication: PRODUCT USED FOR UNKNOWN INDICATION
     Dosage: UNK
  3. OMEPRAZOLE [Concomitant]
     Indication: PRODUCT USED FOR UNKNOWN INDICATION
     Dosage: UNK
  4. NOLOTIL                            /00039502/ [Concomitant]
     Indication: PRODUCT USED FOR UNKNOWN INDICATION
     Dosage: UNK
  5. SINTROM [Concomitant]
     Indication: PRODUCT USED FOR UNKNOWN INDICATION
     Dosage: UNK
  6. THERAPEUTIC RADIOPHARMACEUTICALS [Concomitant]
     Indication: THYROID CANCER
  7. EXALGO [Suspect]
     Dosage: 8 MG, QD
     Route: 048
     Dates: start: 20110815, end: 20110818

REACTIONS (1)
  - GINGIVAL BLEEDING [None]
